FAERS Safety Report 5505627-1 (Version None)
Quarter: 2007Q4

REPORT INFORMATION
  Report Type: 
  Country: None (occurrence: None)
  Receive Date: 20071102
  Receipt Date: 20071025
  Transmission Date: 20080405
  Serious: Yes (Hospitalization)
  Sender: FDA-Public Use
  Company Number: JP-PFIZER INC-2007084740

PATIENT
  Sex: Female
  Weight: 44 kg

DRUGS (10)
  1. ZOLOFT [Suspect]
     Indication: EATING DISORDER
     Route: 048
     Dates: start: 20070711, end: 20071002
  2. ZOLOFT [Suspect]
     Indication: DEPRESSION
  3. SOLANAX [Suspect]
  4. ALL OTHER THERAPEUTIC PRODUCTS [Concomitant]
     Route: 048
  5. EFFORTIL [Concomitant]
     Indication: ORTHOSTATIC HYPOTENSION
     Route: 048
     Dates: start: 20050304, end: 20071002
  6. AMOBAN [Concomitant]
     Indication: INSOMNIA
     Route: 048
     Dates: start: 20070713, end: 20071002
  7. TRIAZOLAM [Concomitant]
     Indication: INSOMNIA
     Route: 048
     Dates: start: 20070827, end: 20071002
  8. GASMOTIN [Concomitant]
     Indication: GASTROINTESTINAL DISORDER
     Route: 048
     Dates: start: 20070711, end: 20071002
  9. ENSURE [Concomitant]
     Indication: MALNUTRITION
     Route: 048
     Dates: start: 20070912, end: 20071002
  10. LUVOX [Concomitant]
     Route: 048

REACTIONS (4)
  - ALANINE AMINOTRANSFERASE INCREASED [None]
  - ASPARTATE AMINOTRANSFERASE INCREASED [None]
  - DEPRESSED LEVEL OF CONSCIOUSNESS [None]
  - OVERDOSE [None]
